FAERS Safety Report 13839503 (Version 1)
Quarter: 2017Q3

REPORT INFORMATION
  Report Type: Spontaneous
  Country: US (occurrence: US)
  Receive Date: 20170805
  Receipt Date: 20170805
  Transmission Date: 20171127
  Serious: No
  Sender: FDA-Public Use
  Company Number: None

PATIENT
  Age: 69 Year
  Sex: Male

DRUGS (20)
  1. HEPARIN [Concomitant]
     Active Substance: HEPARIN SODIUM
  2. LISINOPRIL. [Concomitant]
     Active Substance: LISINOPRIL
  3. AMIODARONE [Suspect]
     Active Substance: AMIODARONE
     Indication: VENTRICULAR TACHYCARDIA
     Dosage: 0.5 MG/HR CONTINOUS IV
     Route: 042
     Dates: start: 20161227, end: 20161229
  4. ASPIRIN. [Concomitant]
     Active Substance: ASPIRIN
  5. CHOLECALCIFEROL [Concomitant]
     Active Substance: CHOLECALCIFEROL
  6. DOCUSATE [Concomitant]
     Active Substance: DOCUSATE
  7. LIDOCAINE. [Concomitant]
     Active Substance: LIDOCAINE
  8. METOPROLOL SUCCINATE. [Concomitant]
     Active Substance: METOPROLOL SUCCINATE
  9. MEXILETINE [Concomitant]
     Active Substance: MEXILETINE
  10. FISH OIL [Concomitant]
     Active Substance: FISH OIL
  11. HYDRALAZINE [Concomitant]
     Active Substance: HYDRALAZINE HYDROCHLORIDE
  12. POTASSIUM CHLORIDE. [Concomitant]
     Active Substance: POTASSIUM CHLORIDE
  13. SENNA [Concomitant]
     Active Substance: SENNA LEAF\SENNOSIDES\SENNOSIDES A AND B
  14. LANSPRAZOLE [Concomitant]
  15. MAGNESIUM OXIDE. [Concomitant]
     Active Substance: MAGNESIUM OXIDE
  16. OXYCODONE [Concomitant]
     Active Substance: OXYCODONE
  17. MULTIVITAMIN [Concomitant]
     Active Substance: VITAMINS
  18. TAMSULOSIN [Concomitant]
     Active Substance: TAMSULOSIN
  19. ACETAMINOPHEN. [Concomitant]
     Active Substance: ACETAMINOPHEN
  20. FUROSEMIDE. [Concomitant]
     Active Substance: FUROSEMIDE

REACTIONS (2)
  - Infusion site pain [None]
  - Infusion site erythema [None]

NARRATIVE: CASE EVENT DATE: 20161228
